FAERS Safety Report 12376881 (Version 2)
Quarter: 2016Q2

REPORT INFORMATION
  Report Type: Report from Study
  Country: US (occurrence: US)
  Receive Date: 20160517
  Receipt Date: 20160517
  Transmission Date: 20160815
  Serious: No
  Sender: FDA-Public Use
  Company Number: US-MALLINCKRODT-T201503086

PATIENT
  Age: 62 Year
  Sex: Female
  Weight: 82 kg

DRUGS (7)
  1. REPOSITORY CORTICOTROPIN INJECTION [Suspect]
     Active Substance: CORTICOTROPIN
     Dosage: 80 UNITS EVERY OTHER WEEK
     Route: 058
  2. PREDNISONE. [Concomitant]
     Active Substance: PREDNISONE
     Dosage: UNK
     Dates: end: 201505
  3. BACTRIM [Concomitant]
     Active Substance: SULFAMETHOXAZOLE\TRIMETHOPRIM
     Indication: SARCOIDOSIS
     Dosage: 800/160MG 3 TIMES WEEKLY
  4. FOLIC ACID. [Concomitant]
     Active Substance: FOLIC ACID
     Dosage: DAILY EXCEPT ON SATURDAYS
  5. REPOSITORY CORTICOTROPIN INJECTION [Suspect]
     Active Substance: CORTICOTROPIN
     Indication: SARCOIDOSIS
     Dosage: 80 UNITS TWICE WEEKLY
     Route: 058
     Dates: start: 20150601
  6. REPOSITORY CORTICOTROPIN INJECTION [Suspect]
     Active Substance: CORTICOTROPIN
     Dosage: 80 UNITS ONCE WEEKLY
     Route: 058
     Dates: start: 2015, end: 2015
  7. METHOTREXATE [Concomitant]
     Active Substance: METHOTREXATE
     Dosage: 15 MG WEEKLY ON SATURDAYS

REACTIONS (14)
  - Decreased appetite [Recovering/Resolving]
  - Fungal infection [Not Recovered/Not Resolved]
  - Oropharyngeal pain [Recovering/Resolving]
  - Intraocular pressure increased [Not Recovered/Not Resolved]
  - Pollakiuria [Recovering/Resolving]
  - Injection site bruising [Not Recovered/Not Resolved]
  - Urinary tract infection [Not Recovered/Not Resolved]
  - Depressed mood [Not Recovered/Not Resolved]
  - Nasopharyngitis [Not Recovered/Not Resolved]
  - Drug ineffective [Not Recovered/Not Resolved]
  - Injection site injury [Not Recovered/Not Resolved]
  - Abdominal discomfort [Not Recovered/Not Resolved]
  - Cough [Not Recovered/Not Resolved]
  - Fatigue [Not Recovered/Not Resolved]

NARRATIVE: CASE EVENT DATE: 201506
